FAERS Safety Report 21211313 (Version 1)
Quarter: 2022Q3

REPORT INFORMATION
  Report Type: Spontaneous
  Country: US (occurrence: None)
  Receive Date: 20220812
  Receipt Date: 20220812
  Transmission Date: 20221027
  Serious: No
  Sender: FDA-Public Use
  Company Number: None

PATIENT
  Age: 47 Year
  Sex: Female
  Weight: 87.75 kg

DRUGS (2)
  1. AQUAPHOR HEALING [Suspect]
     Active Substance: PETROLATUM
     Indication: Dry skin prophylaxis
     Dosage: FREQUENCY : AT BEDTIME;?
     Route: 061
     Dates: start: 20220811, end: 20220812
  2. VITAMIN D NOS [Concomitant]
     Active Substance: VITAMIN D NOS

REACTIONS (3)
  - Application site pain [None]
  - Skin disorder [None]
  - Erythema [None]

NARRATIVE: CASE EVENT DATE: 20220811
